FAERS Safety Report 21404490 (Version 2)
Quarter: 2023Q1

REPORT INFORMATION
  Report Type: Spontaneous
  Country: AT (occurrence: AT)
  Receive Date: 20221003
  Receipt Date: 20230104
  Transmission Date: 20230418
  Serious: Yes (Life-Threatening, Hospitalization, Other)
  Sender: FDA-Public Use
  Company Number: AT-BRISTOL-MYERS SQUIBB COMPANY-2022-111156

PATIENT
  Age: 77 Year
  Sex: Male

DRUGS (3)
  1. LUSPATERCEPT [Suspect]
     Active Substance: LUSPATERCEPT
     Indication: Myelodysplastic syndrome
     Dosage: CYCLE:1-2 LUSPARTACEPT CYCLE:30 SO FAR
  2. LUSPATERCEPT [Suspect]
     Active Substance: LUSPATERCEPT
     Indication: Myeloproliferative neoplasm
     Dosage: CYCLE:3-4 LUSPARTACEPT CYCLE:30 SO FAR
  3. LUSPATERCEPT [Suspect]
     Active Substance: LUSPATERCEPT
     Dosage: CYCLE5-21 LUSPARTACEPT CYCLE:30 SO FAR

REACTIONS (4)
  - Myocardial infarction [Unknown]
  - Anaemia [Unknown]
  - Chronic obstructive pulmonary disease [Unknown]
  - Transfusion-related acute lung injury [Unknown]
